FAERS Safety Report 9298664 (Version 1)
Quarter: 2013Q2

REPORT INFORMATION
  Report Type: Report from Study
  Country: US (occurrence: US)
  Receive Date: 20130520
  Receipt Date: 20130520
  Transmission Date: 20140414
  Serious: Yes (Hospitalization)
  Sender: FDA-Public Use
  Company Number: US-ABBOTT-13P-163-1089720-00

PATIENT
  Age: 51 Year
  Sex: Male

DRUGS (3)
  1. HUMIRA [Suspect]
     Indication: CROHN^S DISEASE
     Route: 058
     Dates: start: 201303, end: 201303
  2. HUMIRA [Suspect]
     Indication: RHEUMATOID ARTHRITIS
     Route: 058
     Dates: start: 201303, end: 201303
  3. HUMIRA [Suspect]
     Route: 058
     Dates: start: 201305, end: 201305

REACTIONS (2)
  - Intestinal obstruction [Recovering/Resolving]
  - Abdominal pain [Recovering/Resolving]
